FAERS Safety Report 14423979 (Version 3)
Quarter: 2019Q1

REPORT INFORMATION
  Report Type: Spontaneous
  Country: CZ (occurrence: CZ)
  Receive Date: 20180123
  Receipt Date: 20190215
  Transmission Date: 20190417
  Serious: Yes (Hospitalization)
  Sender: FDA-Public Use
  Company Number: CZ-AUROBINDO-AUR-APL-2018-002211

PATIENT

DRUGS (10)
  1. VANCOMYCIN [Suspect]
     Active Substance: VANCOMYCIN
     Indication: EVIDENCE BASED TREATMENT
     Dosage: 3 GRAM, ONCE A DAY
     Route: 042
  2. AMPICILLIN [Concomitant]
     Active Substance: AMPICILLIN
     Indication: ARTHRITIS
     Dosage: UNK
     Route: 065
  3. PIPERACILLIN AND TAZOBACTAM [Suspect]
     Active Substance: PIPERACILLIN SODIUM\TAZOBACTAM SODIUM
     Indication: ENTEROCOCCAL INFECTION
     Dosage: UNK
     Route: 065
  4. ENOXAPARIN [Concomitant]
     Active Substance: ENOXAPARIN
     Indication: DEEP VEIN THROMBOSIS
     Dosage: 1.6 MILLILITER, ONCE A DAY
     Route: 058
  5. AMPICILLIN SODIUM;SULBACTAM SODIUM [Suspect]
     Active Substance: AMPICILLIN SODIUM\SULBACTAM SODIUM
     Indication: ENTEROCOCCAL INFECTION
     Dosage: UNK
     Route: 065
  6. GENTAMICIN. [Suspect]
     Active Substance: GENTAMICIN
     Indication: ENTEROCOCCAL INFECTION
     Dosage: UNK
     Route: 065
  7. VANCOMYCIN [Suspect]
     Active Substance: VANCOMYCIN
     Indication: ENDOCARDITIS
  8. CIPROFLOXACIN. [Suspect]
     Active Substance: CIPROFLOXACIN
     Indication: EVIDENCE BASED TREATMENT
     Dosage: 1500 MILLIGRAM, ONCE A DAY
     Route: 048
  9. LINEZOLID. [Suspect]
     Active Substance: LINEZOLID
     Indication: ENTEROCOCCAL INFECTION
     Dosage: UNK
     Route: 065
  10. HEPARIN [Concomitant]
     Active Substance: HEPARIN SODIUM
     Indication: HAEMARTHROSIS
     Dosage: UNK
     Route: 065

REACTIONS (3)
  - Drug ineffective [Unknown]
  - Hepatotoxicity [Recovered/Resolved]
  - Decreased appetite [Recovered/Resolved]
